FAERS Safety Report 5255049-6 (Version None)
Quarter: 2007Q1

REPORT INFORMATION
  Report Type: 
  Country: None (occurrence: None)
  Receive Date: 20070305
  Receipt Date: 20070220
  Transmission Date: 20070707
  Serious: Yes (Hospitalization)
  Sender: FDA-Public Use
  Company Number: FR-PFIZER INC-2007014103

PATIENT
  Age: 43 Year
  Sex: Female

DRUGS (2)
  1. SULFASALAZINE [Suspect]
     Route: 048
     Dates: start: 20060101, end: 20061229
  2. ULTRACET [Concomitant]
     Route: 048

REACTIONS (1)
  - PNEUMONIA ASPIRATION [None]
